FAERS Safety Report 20197499 (Version 1)
Quarter: 2021Q4

REPORT INFORMATION
  Report Type: Spontaneous
  Country: US (occurrence: US)
  Receive Date: 20211217
  Receipt Date: 20211217
  Transmission Date: 20220303
  Serious: No
  Sender: FDA-Public Use
  Company Number: US-PACIRA-2021000291

PATIENT

DRUGS (1)
  1. EXPAREL [Suspect]
     Active Substance: BUPIVACAINE
     Dosage: 2 DOSES OF 266MG EXPAREL INFILTRATED
     Route: 050
     Dates: start: 20210423, end: 20210423

REACTIONS (2)
  - Extra dose administered [Unknown]
  - Overdose [Unknown]
